FAERS Safety Report 7323197-2 (Version None)
Quarter: 2011Q1

REPORT INFORMATION
  Report Type: 
  Country: None (occurrence: None)
  Receive Date: 20110301
  Receipt Date: 20110220
  Transmission Date: 20110831
  Serious: Yes (Death)
  Sender: FDA-Public Use
  Company Number: EG-SANOFI-AVENTIS-2011SA011108

PATIENT
  Age: 67 Year
  Sex: Male

DRUGS (1)
  1. LANTUS [Suspect]
     Route: 058
     Dates: start: 20100801

REACTIONS (1)
  - DEATH [None]
